FAERS Safety Report 5923413-5 (Version None)
Quarter: 2008Q4

REPORT INFORMATION
  Report Type: 
  Country: None (occurrence: None)
  Receive Date: 20081020
  Receipt Date: 20080919
  Transmission Date: 20090506
  Serious: No
  Sender: FDA-Public Use
  Company Number: US-BAYER-200834045NA

PATIENT
  Age: 31 Year
  Sex: Female
  Weight: 93 kg

DRUGS (2)
  1. MIRENA [Suspect]
     Indication: CONTRACEPTION
     Route: 015
     Dates: start: 20070807
  2. ZOLOFT [Concomitant]

REACTIONS (2)
  - VAGINAL DISCHARGE [None]
  - VAGINAL ODOUR [None]
